FAERS Safety Report 5802604-8 (Version None)
Quarter: 2008Q3

REPORT INFORMATION
  Report Type: 
  Country: None (occurrence: None)
  Receive Date: 20080703
  Receipt Date: 20080617
  Transmission Date: 20090109
  Serious: Yes (Hospitalization)
  Sender: FDA-Public Use
  Company Number: S08-FRA-02224-01

PATIENT
  Age: 58 Year
  Sex: Female

DRUGS (10)
  1. CITALOPRAM HYDROBROMIDE [Suspect]
     Indication: DEPRESSION
     Dosage: 10 MG QD PO
     Route: 048
     Dates: start: 20080326, end: 20080411
  2. LOVENOX [Suspect]
     Indication: MOBILITY DECREASED
     Dosage: 4000 IU QD SC
     Route: 058
     Dates: start: 20080210, end: 20080411
  3. PERINDOPRIL ERBUMINE [Suspect]
     Indication: CEREBROVASCULAR ACCIDENT
     Dosage: 4 MG QD PO
     Route: 048
     Dates: start: 20080201, end: 20080410
  4. INDAPAMIDE [Suspect]
     Indication: CEREBROVASCULAR ACCIDENT
     Dosage: 1 TABLET QD PO
     Route: 048
     Dates: start: 20080201, end: 20080410
  5. INDAPAMIDE [Suspect]
     Indication: CEREBROVASCULAR ACCIDENT
     Dosage: 3 TABLET QD PO
     Route: 048
     Dates: start: 20071201, end: 20080201
  6. OGASTRO (LANSOPRAZOLE) [Suspect]
     Indication: GASTRITIS
     Dosage: 30 MG QD PO
     Route: 048
     Dates: start: 20080226, end: 20080410
  7. PRAVASTATIN [Suspect]
     Indication: HYPERCHOLESTEROLAEMIA
     Dosage: 20 MG QD PO
     Route: 048
     Dates: start: 20080305, end: 20080411
  8. FORLAX (MACROGOL) [Concomitant]
  9. IMOVANE (ZOPICLONE) [Concomitant]
  10. NICARDIPINE HYDROCHLORIDE [Concomitant]

REACTIONS (5)
  - AGRANULOCYTOSIS [None]
  - ALANINE AMINOTRANSFERASE INCREASED [None]
  - BLOOD BICARBONATE INCREASED [None]
  - LEUKOPENIA [None]
  - NEUTROPENIA [None]
